FAERS Safety Report 11564506 (Version 6)
Quarter: 2015Q4

REPORT INFORMATION
  Report Type: Report from Study
  Country: CA (occurrence: CA)
  Receive Date: 20150928
  Receipt Date: 20151228
  Transmission Date: 20160304
  Serious: Yes (Hospitalization, Other)
  Sender: FDA-Public Use
  Company Number: PHHO2015CA014475

PATIENT
  Age: 67 Year
  Sex: Female
  Weight: 91.5 kg

DRUGS (6)
  1. TRIAZIDE [Concomitant]
     Indication: HYPERTENSION
     Dosage: 50+25 MG, OD
     Route: 065
     Dates: start: 20120306
  2. VENTOLIN [Concomitant]
     Active Substance: ALBUTEROL SULFATE
     Indication: CHRONIC OBSTRUCTIVE PULMONARY DISEASE
     Dosage: 2 INH QID PRN
     Route: 055
     Dates: start: 20100921
  3. K-DUR [Concomitant]
     Active Substance: POTASSIUM CHLORIDE
     Indication: SUPPLEMENTATION THERAPY
     Dosage: 4 DF, OD
     Route: 048
     Dates: start: 20150818
  4. ASA [Concomitant]
     Active Substance: ASPIRIN
     Indication: CORONARY ARTERY DISEASE
     Dosage: 80 MG, OD
     Route: 065
     Dates: start: 20120306
  5. CRESTOR [Concomitant]
     Active Substance: ROSUVASTATIN CALCIUM
     Indication: HYPERCHOLESTEROLAEMIA
     Dosage: 10 MG, OD
     Route: 048
     Dates: start: 20120306
  6. ACZ885 [Suspect]
     Active Substance: CANAKINUMAB
     Indication: CARDIOVASCULAR EVENT PROPHYLAXIS
     Dosage: 150 MG, UNK
     Route: 058
     Dates: start: 20120221, end: 20150805

REACTIONS (1)
  - Lip and/or oral cavity cancer [Recovering/Resolving]

NARRATIVE: CASE EVENT DATE: 20150903
